FAERS Safety Report 5879913-X (Version None)
Quarter: 2008Q3

REPORT INFORMATION
  Report Type: 
  Country: None (occurrence: None)
  Receive Date: 20080912
  Receipt Date: 20080901
  Transmission Date: 20090109
  Serious: Yes (Other)
  Sender: FDA-Public Use
  Company Number: DE-ELI_LILLY_AND_COMPANY-DE200809000422

PATIENT
  Age: 7 Year
  Sex: Female
  Weight: 19.5 kg

DRUGS (1)
  1. HUMATROPE [Suspect]
     Indication: TURNER'S SYNDROME
     Dosage: 1 MG, DAILY (1/D)
     Route: 058
     Dates: start: 20040101

REACTIONS (2)
  - PAPILLOEDEMA [None]
  - STRABISMUS [None]
